FAERS Safety Report 17801506 (Version 1)
Quarter: 2020Q2

REPORT INFORMATION
  Report Type: Spontaneous
  Country: DE (occurrence: DE)
  Receive Date: 20200519
  Receipt Date: 20200519
  Transmission Date: 20200714
  Serious: Yes (Hospitalization)
  Sender: FDA-Public Use
  Company Number: NVSC2020DE134739

PATIENT
  Age: 68 Year
  Sex: Female

DRUGS (5)
  1. FAMOTIDIN RATIOPHARM [Suspect]
     Active Substance: FAMOTIDINE
     Indication: ABDOMINAL PAIN UPPER
     Dosage: 40 MG, QD
     Route: 048
     Dates: start: 20190924, end: 20190926
  2. RANITIDINE. [Suspect]
     Active Substance: RANITIDINE
     Indication: PRODUCT USED FOR UNKNOWN INDICATION
     Route: 048
     Dates: start: 20190927
  3. FAMOTIDIN RATIOPHARM [Suspect]
     Active Substance: FAMOTIDINE
     Indication: DIZZINESS
     Dosage: 40 MG, QD
     Route: 048
     Dates: start: 201911
  4. FAMOTIDIN RATIOPHARM [Suspect]
     Active Substance: FAMOTIDINE
     Indication: GASTROOESOPHAGEAL REFLUX DISEASE
  5. FAMOTIDIN RATIOPHARM [Suspect]
     Active Substance: FAMOTIDINE
     Indication: NAUSEA

REACTIONS (5)
  - Nausea [Recovered/Resolved]
  - Gastrooesophageal reflux disease [Recovered/Resolved]
  - Drug ineffective [Recovered/Resolved]
  - Therapeutic product effect delayed [Recovered/Resolved]
  - Abdominal pain upper [Recovered/Resolved]

NARRATIVE: CASE EVENT DATE: 20190924
